FAERS Safety Report 8433859-1 (Version None)
Quarter: 2012Q2

REPORT INFORMATION
  Report Type: 
  Country: None (occurrence: None)
  Receive Date: 20120323
  Receipt Date: 20110620
  Transmission Date: 20120825
  Serious: Yes (Other)
  Sender: FDA-Public Use
  Company Number: 163-21880-11062943

PATIENT
  Age: 91 Year
  Sex: Male

DRUGS (7)
  1. NORVASC [Concomitant]
  2. WARFARIN SODIUM [Concomitant]
  3. SYNTHROID [Concomitant]
  4. SIMVASTATIN [Concomitant]
  5. LISINOPRIL [Concomitant]
  6. REVLIMID [Suspect]
     Indication: MULTIPLE MYELOMA
     Dosage: 15 MG, 1 IN 1 D, PO , 10 MG, 1 IN 1 D, PO
     Route: 048
     Dates: start: 20110201, end: 20110101
  7. REVLIMID [Suspect]
     Indication: MULTIPLE MYELOMA
     Dosage: 15 MG, 1 IN 1 D, PO , 10 MG, 1 IN 1 D, PO
     Route: 048
     Dates: start: 20110501, end: 20110501

REACTIONS (2)
  - CARDIAC FAILURE CONGESTIVE [None]
  - PNEUMONIA [None]
